FAERS Safety Report 17036819 (Version 1)
Quarter: 2019Q4

REPORT INFORMATION
  Report Type: Report from Study
  Country: DE (occurrence: DE)
  Receive Date: 20191115
  Receipt Date: 20191115
  Transmission Date: 20200122
  Serious: Yes (Other)
  Sender: FDA-Public Use
  Company Number: PHHY2014DE113704

PATIENT
  Age: 47 Year
  Sex: Female

DRUGS (2)
  1. GILENYA [Suspect]
     Active Substance: FINGOLIMOD HYDROCHLORIDE
     Dosage: UNK
     Route: 048
     Dates: start: 20140408, end: 20170318
  2. GILENYA [Suspect]
     Active Substance: FINGOLIMOD HYDROCHLORIDE
     Indication: MULTIPLE SCLEROSIS
     Dosage: UNK UNK, QD
     Route: 048
     Dates: start: 20140127, end: 20140407

REACTIONS (15)
  - White blood cell count decreased [Unknown]
  - Radiculopathy [Recovered/Resolved]
  - Eye pain [Recovered/Resolved]
  - Bronchitis [Unknown]
  - Diarrhoea [Recovered/Resolved]
  - Headache [Recovered/Resolved]
  - Laryngitis [Unknown]
  - Pyrexia [Unknown]
  - Vertigo [Recovered/Resolved]
  - Lymphopenia [Recovered/Resolved]
  - Dysaesthesia [Recovered/Resolved]
  - Urinary incontinence [Recovered/Resolved]
  - Lymphocyte count decreased [Recovered/Resolved]
  - Nasopharyngitis [Unknown]
  - Ataxia [Unknown]

NARRATIVE: CASE EVENT DATE: 20140404
